FAERS Safety Report 6244639-X (Version None)
Quarter: 2009Q2

REPORT INFORMATION
  Report Type: 
  Country: None (occurrence: None)
  Receive Date: 20090625
  Receipt Date: 20090616
  Transmission Date: 20091009
  Serious: Yes (Other)
  Sender: FDA-Public Use
  Company Number: US-BAYER-200914420NA

PATIENT
  Age: 58 Year
  Sex: Male

DRUGS (1)
  1. NEXAVAR [Suspect]
     Indication: GASTRIC CANCER
     Dosage: TOTAL DAILY DOSE: 800 MG  UNIT DOSE: 200 MG
     Route: 048
     Dates: start: 20090214

REACTIONS (5)
  - BLOOD PRESSURE INCREASED [None]
  - MALIGNANT MELANOMA [None]
  - MELANOCYTIC NAEVUS [None]
  - MUSCLE SPASMS [None]
  - PAIN IN EXTREMITY [None]
